FAERS Safety Report 23710191 (Version 1)
Quarter: 2024Q2

REPORT INFORMATION
  Report Type: Spontaneous
  Country: US (occurrence: US)
  Receive Date: 20240405
  Receipt Date: 20240405
  Transmission Date: 20240716
  Serious: No
  Sender: FDA-Public Use
  Company Number: US-APOTEX-2024AP004072

PATIENT
  Age: 48 Year

DRUGS (8)
  1. TEMOZOLOMIDE [Suspect]
     Active Substance: TEMOZOLOMIDE
     Indication: Oligodendroglioma
     Dosage: UNK
     Route: 065
  2. TEMOZOLOMIDE [Suspect]
     Active Substance: TEMOZOLOMIDE
     Indication: Oligodendroglioma
     Dosage: 5 MILLIGRAM (1 CAPSULE EVERY 45 MINUTES X 3)
     Route: 065
  3. TEMOZOLOMIDE [Suspect]
     Active Substance: TEMOZOLOMIDE
     Dosage: 10 MILLIGRAM (2 CAPSULES EVERY 45 MINUTES X 2)
     Route: 065
  4. TEMOZOLOMIDE [Suspect]
     Active Substance: TEMOZOLOMIDE
     Dosage: 15 MILLIGRAM (3 CAPSULES EVERY 45 MINUTES X 1)
     Route: 065
  5. TEMOZOLOMIDE [Suspect]
     Active Substance: TEMOZOLOMIDE
     Indication: Oligodendroglioma
     Dosage: 20 MILLIGRAM (TOTAL DOSE 70 MILLIGRAM)
     Route: 065
  6. TEMOZOLOMIDE [Suspect]
     Active Substance: TEMOZOLOMIDE
     Dosage: 40 MILLIGRAM (2 CAPSULES EVERY 45 MINUTS-TOTAL DOSE110 MILLIGRAM)
     Route: 065
  7. TEMOZOLOMIDE [Suspect]
     Active Substance: TEMOZOLOMIDE
     Dosage: 60 MILLIGRAM (3 CAPSULES EVERY 45 MINUTS-TOTAL DOSE170 MILLIGRAM)
     Route: 065
  8. TEMOZOLOMIDE [Suspect]
     Active Substance: TEMOZOLOMIDE
     Dosage: 80 MILLIGRAM (4 CAPSULES EVERY 45 MINUTS-TOTAL DOSE 250 MILLIGRAM)
     Route: 065

REACTIONS (2)
  - Fixed eruption [Recovering/Resolving]
  - Rash [Unknown]
